FAERS Safety Report 10081997 (Version 3)
Quarter: 2014Q2

REPORT INFORMATION
  Report Type: Spontaneous
  Country: DE (occurrence: DE)
  Receive Date: 20140416
  Receipt Date: 20140528
  Transmission Date: 20141212
  Serious: Yes (Hospitalization, Other)
  Sender: FDA-Public Use
  Company Number: DE-GILEAD-2014-0099793

PATIENT
  Age: 44 Year
  Sex: Female
  Weight: 88 kg

DRUGS (3)
  1. SOVALDI [Suspect]
     Indication: CHRONIC HEPATITIS C
     Dosage: 400 MG, UNK
     Route: 048
     Dates: start: 20140201
  2. RIBAVIRIN [Concomitant]
     Dosage: 1200 UNK, UNK
     Route: 048
     Dates: start: 20140201
  3. PEGINTERFERON [Concomitant]
     Dosage: 180 UNK, UNK
     Route: 058
     Dates: start: 20140201

REACTIONS (2)
  - Ischaemic stroke [Recovered/Resolved with Sequelae]
  - Carotid artery occlusion [Recovered/Resolved with Sequelae]
